FAERS Safety Report 26174039 (Version 2)
Quarter: 2025Q4

REPORT INFORMATION
  Report Type: Report from Study
  Country: JP (occurrence: JP)
  Receive Date: 20251218
  Receipt Date: 20251228
  Transmission Date: 20260118
  Serious: Yes (Death, Hospitalization, Other)
  Sender: TAKEDA
  Company Number: JP-TAKEDA-2025TJP012798

PATIENT
  Age: 41 Year
  Sex: Male

DRUGS (4)
  1. FRUQUINTINIB [Suspect]
     Active Substance: FRUQUINTINIB
     Indication: Colon cancer
     Dosage: 5 MILLIGRAM
     Dates: start: 20251004, end: 20251010
  2. OXYCONTIN [Concomitant]
     Active Substance: OXYCODONE HYDROCHLORIDE
     Indication: Pain management
     Dosage: UNK
  3. FENTANYL [Concomitant]
     Active Substance: FENTANYL
     Indication: Pain management
     Dosage: UNK
  4. FENTANYL [Concomitant]
     Active Substance: FENTANYL
     Dosage: UNK

REACTIONS (1)
  - Colon cancer [Fatal]

NARRATIVE: CASE EVENT DATE: 20251020
